FAERS Safety Report 17059287 (Version 1)
Quarter: 2019Q4

REPORT INFORMATION
  Report Type: Spontaneous
  Country: GB (occurrence: GB)
  Receive Date: 20191121
  Receipt Date: 20191121
  Transmission Date: 20200122
  Serious: Yes (Life-Threatening)
  Sender: FDA-Public Use
  Company Number: GB-PFIZER INC-2019502628

PATIENT
  Age: 52 Year
  Sex: Female
  Weight: 107.4 kg

DRUGS (4)
  1. THIAMINE. [Concomitant]
     Active Substance: THIAMINE
     Dosage: 300 MG, 1X/DAY
  2. SERTRALINE HCL [Suspect]
     Active Substance: SERTRALINE HYDROCHLORIDE
     Indication: DEPRESSION
     Dosage: 200 MG, 1X/DAY
     Route: 048
  3. VITAMIN B COMPOUND STRONG [Concomitant]
     Active Substance: NIACINAMIDE\PYRIDOXINE HYDROCHLORIDE\RIBOFLAVIN\THIAMINE HYDROCHLORIDE
     Dosage: ONCE IN MORNING
     Route: 048
  4. VITAMIN B12 [VITAMIN B12 NOS] [Concomitant]
     Active Substance: CYANOCOBALAMIN
     Indication: BLOOD ALCOHOL INCREASED
     Dosage: 1 MG, EVERY 3 MONTHS
     Route: 030

REACTIONS (1)
  - Haemorrhage intracranial [Recovering/Resolving]
